FAERS Safety Report 15310586 (Version 1)
Quarter: 2018Q3

REPORT INFORMATION
  Report Type: Spontaneous
  Country: US (occurrence: US)
  Receive Date: 20180813
  Receipt Date: 20180813
  Transmission Date: 20181010
  Serious: Yes (Hospitalization)
  Sender: FDA-Public Use
  Company Number: None

PATIENT
  Age: 58 Year
  Sex: Male
  Weight: 64.7 kg

DRUGS (6)
  1. GABAPENTIN. [Concomitant]
     Active Substance: GABAPENTIN
  2. VICKS NYQUIL [Concomitant]
     Active Substance: ACETAMINOPHEN\DEXTROMETHORPHAN HYDROBROMIDE\DOXYLAMINE SUCCINATE
  3. OMEPRAZOLE. [Concomitant]
     Active Substance: OMEPRAZOLE
  4. OXYCODONE [Concomitant]
     Active Substance: OXYCODONE
  5. COMPAZINE [Concomitant]
     Active Substance: PROCHLORPERAZINE MALEATE
  6. XALKORI [Suspect]
     Active Substance: CRIZOTINIB
     Indication: LUNG CANCER METASTATIC
     Dates: start: 20180417, end: 20180806

REACTIONS (17)
  - Exposure to toxic agent [None]
  - Product physical issue [None]
  - Dyspnoea [None]
  - Corynebacterium test positive [None]
  - Exposure via inhalation [None]
  - Gastrooesophageal reflux disease [None]
  - Oesophagitis [None]
  - Burning sensation [None]
  - Pyrexia [None]
  - Odynophagia [None]
  - Respiratory fume inhalation disorder [None]
  - Eructation [None]
  - Injury [None]
  - Pneumonitis chemical [None]
  - Culture positive [None]
  - Chronic obstructive pulmonary disease [None]
  - Cough [None]

NARRATIVE: CASE EVENT DATE: 20180806
